FAERS Safety Report 20637656 (Version 4)
Quarter: 2022Q3

REPORT INFORMATION
  Report Type: Spontaneous
  Country: US (occurrence: US)
  Receive Date: 20220325
  Receipt Date: 20220927
  Transmission Date: 20221027
  Serious: No
  Sender: FDA-Public Use
  Company Number: US-PFIZER INC-202200403610

PATIENT
  Age: 1 Year
  Sex: Female
  Weight: 11.34 kg

DRUGS (1)
  1. SOMATROPIN [Suspect]
     Active Substance: SOMATROPIN
     Indication: Prader-Willi syndrome
     Dosage: 0.2 MG, 1X/DAY (INJECTED IN HER THIGH ONCE A DAY)
     Dates: start: 20220109

REACTIONS (4)
  - Screaming [Unknown]
  - Device mechanical issue [Unknown]
  - Injection site haemorrhage [Unknown]
  - Wrong technique in device usage process [Unknown]

NARRATIVE: CASE EVENT DATE: 20220310
